FAERS Safety Report 8695183 (Version 2)
Quarter: 2013Q4

REPORT INFORMATION
  Report Type: Spontaneous
  Country: US (occurrence: US)
  Receive Date: 20120731
  Receipt Date: 20131107
  Transmission Date: 20140711
  Serious: Yes (Hospitalization)
  Sender: FDA-Public Use
  Company Number: US-009507513-1207USA009906

PATIENT
  Age: 80 Year
  Sex: Male

DRUGS (6)
  1. ZOCOR [Suspect]
     Dosage: 40 MG, QD
     Route: 048
  2. FUSIDIC ACID [Suspect]
     Dosage: 250 MG, BID
     Route: 048
  3. NICORANDIL [Concomitant]
  4. FLOXACILLIN [Concomitant]
  5. OMEPRAZOLE [Concomitant]
  6. CILOSTAZOL [Concomitant]

REACTIONS (3)
  - Drug interaction [Unknown]
  - Rhabdomyolysis [Unknown]
  - Localised infection [Unknown]
